FAERS Safety Report 5398946-3 (Version None)
Quarter: 2007Q3

REPORT INFORMATION
  Report Type: 
  Country: None (occurrence: None)
  Receive Date: 20070727
  Receipt Date: 20070718
  Transmission Date: 20080115
  Serious: Yes (Hospitalization)
  Sender: FDA-Public Use
  Company Number: HQWYE198111APR07

PATIENT
  Sex: Male
  Weight: 16.5 kg

DRUGS (2)
  1. BENEFIX [Suspect]
     Indication: HAEMOPHILIA
     Dosage: PRIMARY PROPHYLAXIS DOSE 840-1000 U (50-60 IU/KG) 2X WEEK
     Route: 042
     Dates: start: 20061128, end: 20070322
  2. BENEFIX [Suspect]
     Indication: HAEMORRHAGE PROPHYLAXIS
     Dates: start: 20070101

REACTIONS (6)
  - FACTOR IX INHIBITION [None]
  - FLUSHING [None]
  - NAUSEA [None]
  - ORAL PAIN [None]
  - RASH ERYTHEMATOUS [None]
  - VOMITING [None]
